FAERS Safety Report 16258254 (Version 2)
Quarter: 2019Q2

REPORT INFORMATION
  Report Type: Spontaneous
  Country: US (occurrence: US)
  Receive Date: 20190430
  Receipt Date: 20190430
  Transmission Date: 20190711
  Serious: Yes (Death)
  Sender: FDA-Public Use
  Company Number: US-CELGENEUS-USA-20190408272

PATIENT
  Age: 86 Year
  Sex: Male
  Weight: 85.81 kg

DRUGS (1)
  1. REVLIMID [Suspect]
     Active Substance: LENALIDOMIDE
     Indication: PLASMA CELL MYELOMA
     Dosage: 2.5 MILLIGRAM
     Route: 048
     Dates: start: 20190404, end: 20190412

REACTIONS (5)
  - Platelet count decreased [Fatal]
  - Urinary tract infection [Fatal]
  - Haemorrhage urinary tract [Fatal]
  - Urethral haemorrhage [Fatal]
  - Pneumonia [Fatal]

NARRATIVE: CASE EVENT DATE: 20190422
